FAERS Safety Report 18423527 (Version 2)
Quarter: 2020Q4

REPORT INFORMATION
  Report Type: Spontaneous
  Country: US (occurrence: US)
  Receive Date: 20201023
  Receipt Date: 20201120
  Transmission Date: 20210114
  Serious: Yes (Other)
  Sender: FDA-Public Use
  Company Number: US-BIOMARINAP-US-2020-132682

PATIENT
  Age: 16 Year
  Sex: Female

DRUGS (7)
  1. CLARITIN [CLARITHROMYCIN] [Concomitant]
     Active Substance: CLARITHROMYCIN
     Indication: PREMEDICATION
     Dosage: UNK, QD
     Route: 048
     Dates: start: 20200810
  2. ZYRTEC [Concomitant]
     Active Substance: CETIRIZINE HYDROCHLORIDE
     Indication: PREMEDICATION
     Dosage: UNK, QD
     Route: 048
     Dates: start: 20200821
  3. PALYNZIQ [Suspect]
     Active Substance: PEGVALIASE-PQPZ
     Dosage: UNK
     Route: 058
     Dates: start: 20200911
  4. KUVAN [Suspect]
     Active Substance: SAPROPTERIN DIHYDROCHLORIDE
     Indication: PHENYLKETONURIA
     Dosage: 1800 MILLIGRAM, QD
     Route: 048
     Dates: start: 201809
  5. PALYNZIQ [Suspect]
     Active Substance: PEGVALIASE-PQPZ
     Dosage: 2.5 MILLIGRAM
     Route: 058
     Dates: start: 20201019
  6. PEPCID [Concomitant]
     Active Substance: FAMOTIDINE
     Indication: PREMEDICATION
     Dosage: UNK, QD
     Route: 048
     Dates: start: 20200821
  7. PALYNZIQ [Suspect]
     Active Substance: PEGVALIASE-PQPZ
     Indication: PHENYLKETONURIA
     Dosage: 10 MILLIGRAM
     Route: 058

REACTIONS (7)
  - Chest discomfort [Unknown]
  - Throat tightness [Unknown]
  - Off label use [Unknown]
  - Dyspnoea [Unknown]
  - Anaphylactic reaction [Unknown]
  - Injection site haemorrhage [Unknown]
  - Chest pain [Unknown]

NARRATIVE: CASE EVENT DATE: 20201009
